FAERS Safety Report 25964226 (Version 1)
Quarter: 2025Q4

REPORT INFORMATION
  Report Type: Spontaneous
  Country: US (occurrence: None)
  Receive Date: 20251027
  Receipt Date: 20251027
  Transmission Date: 20260117
  Serious: Yes (Hospitalization)
  Sender: FDA-CTU
  Company Number: None

PATIENT
  Sex: Male

DRUGS (1)
  1. REVLIMID [Suspect]
     Active Substance: LENALIDOMIDE
     Indication: Follicular lymphoma stage I
     Dosage: FREQUENCY : DAILY;?
     Route: 048
     Dates: start: 20251002

REACTIONS (5)
  - Pyrexia [None]
  - Vomiting [None]
  - Dizziness [None]
  - Dysarthria [None]
  - Cerebrovascular accident [None]
